FAERS Safety Report 23200850 (Version 1)
Quarter: 2023Q4

REPORT INFORMATION
  Report Type: Report from Study
  Country: US (occurrence: US)
  Receive Date: 20231118
  Receipt Date: 20231118
  Transmission Date: 20240109
  Serious: No
  Sender: FDA-Public Use
  Company Number: US-ALXN-202311USA000871US

PATIENT
  Sex: Female

DRUGS (1)
  1. STRENSIQ [Suspect]
     Active Substance: ASFOTASE ALFA
     Indication: Product used for unknown indication
     Dosage: UNK
     Route: 065

REACTIONS (14)
  - Pain in extremity [Unknown]
  - Migraine [Unknown]
  - Injection site reaction [Unknown]
  - Weight decreased [Unknown]
  - Hepatic steatosis [Recovering/Resolving]
  - Hyperlipidaemia [Unknown]
  - Bone pain [Unknown]
  - Arthralgia [Unknown]
  - Injection site erythema [Unknown]
  - Injection site warmth [Unknown]
  - Injection site atrophy [Unknown]
  - Injection site swelling [Unknown]
  - Injection site discolouration [Unknown]
  - Skin mass [Unknown]
